FAERS Safety Report 4795458-2 (Version None)
Quarter: 2005Q4

REPORT INFORMATION
  Report Type: 
  Country: None (occurrence: None)
  Receive Date: 20051012
  Receipt Date: 20051006
  Transmission Date: 20060501
  Serious: Yes (Life-Threatening)
  Sender: FDA-Public Use
  Company Number: 2005AP05304

PATIENT
  Age: 26978 Day
  Sex: Female
  Weight: 52 kg

DRUGS (7)
  1. ARIMIDEX [Suspect]
     Route: 048
     Dates: start: 20010619
  2. BETRILOL [Concomitant]
     Indication: HYPERTENSION
     Route: 048
     Dates: start: 20000428
  3. MEDAZEPAM [Concomitant]
     Indication: HYPERTENSION
     Route: 048
     Dates: start: 20000428
  4. PREDONINE [Concomitant]
     Indication: MUSCULAR DYSTROPHY
     Dates: start: 20040212, end: 20040802
  5. BISPHOSPHONATE [Concomitant]
     Indication: MUSCULAR DYSTROPHY
     Dates: start: 20040212
  6. TOFRANIL [Concomitant]
     Indication: MUSCULAR DYSTROPHY
     Route: 048
     Dates: start: 20040212
  7. CERCINE [Concomitant]
     Indication: MUSCULAR DYSTROPHY
     Dates: start: 20040415

REACTIONS (1)
  - CEREBRAL HAEMORRHAGE [None]
